FAERS Safety Report 10031532 (Version 2)
Quarter: 2014Q1

REPORT INFORMATION
  Report Type: Spontaneous
  Country: SE (occurrence: SE)
  Receive Date: 20140324
  Receipt Date: 20140324
  Transmission Date: 20141002
  Serious: Yes (Hospitalization, Other)
  Sender: FDA-Public Use
  Company Number: SE-PFIZER INC-2014078514

PATIENT
  Age: 68 Year
  Sex: Male

DRUGS (5)
  1. SULFASALAZINE [Suspect]
     Indication: RHEUMATOID ARTHRITIS
     Dosage: 500 MG, 2X/DAY
     Dates: start: 19831209
  2. SULFASALAZINE [Suspect]
     Dosage: 1000 MG, 2X/DAY
  3. HYDRALAZINE [Concomitant]
     Dosage: 26 MG, 2X/DAY
  4. BENDROFLUMETHIAZIDE [Concomitant]
     Dosage: 2.5 MG, DAILY
  5. ATENOL [Concomitant]
     Indication: ESSENTIAL HYPERTENSION
     Dosage: 100 MG, DAILY

REACTIONS (4)
  - Lung infiltration [Recovered/Resolved]
  - Alveolitis [Recovered/Resolved]
  - Hepatotoxicity [Recovered/Resolved]
  - Liver function test abnormal [Recovered/Resolved]
